FAERS Safety Report 7913230-9 (Version None)
Quarter: 2011Q4

REPORT INFORMATION
  Report Type: 
  Country: None (occurrence: None)
  Receive Date: 20111114
  Receipt Date: 20111031
  Transmission Date: 20120403
  Serious: Yes (Other)
  Sender: FDA-Public Use
  Company Number: PHHY2011JP90329

PATIENT
  Sex: Female
  Weight: 48 kg

DRUGS (3)
  1. TRAMADOL HYDROCHLORIDE/ACETAMINOPHEN [Concomitant]
     Route: 048
  2. FAMVIR [Suspect]
     Indication: HERPES ZOSTER
     Dosage: 1500 MG DAILY (500 MG, TID)
     Route: 048
     Dates: start: 20111001, end: 20111001
  3. XYZAL [Concomitant]
     Route: 048

REACTIONS (4)
  - LOSS OF CONSCIOUSNESS [None]
  - BLOOD PRESSURE DECREASED [None]
  - MALAISE [None]
  - FALL [None]
